FAERS Safety Report 5752515-1 (Version None)
Quarter: 2008Q2

REPORT INFORMATION
  Report Type: 
  Country: None (occurrence: None)
  Receive Date: 20080529
  Receipt Date: 20080516
  Transmission Date: 20081010
  Serious: Yes (Other)
  Sender: FDA-Public Use
  Company Number: PHHY2008FR08815

PATIENT
  Age: 84 Year
  Sex: Male

DRUGS (2)
  1. TAREG [Suspect]
     Indication: HYPERTENSION
     Dosage: UNK
     Route: 048
  2. DIURETICS [Concomitant]

REACTIONS (1)
  - HYPONATRAEMIA [None]
